FAERS Safety Report 10387895 (Version 1)
Quarter: 2014Q3

REPORT INFORMATION
  Report Type: Spontaneous
  Country: JP (occurrence: JP)
  Receive Date: 20140815
  Receipt Date: 20140815
  Transmission Date: 20150326
  Serious: Yes (Hospitalization)
  Sender: FDA-Public Use
  Company Number: PHHY2013JP161149

PATIENT
  Age: 90 Year
  Sex: Female

DRUGS (5)
  1. HEPARINOID [Concomitant]
     Active Substance: CHONDROITIN SULFATE (BOVINE)
  2. EXELON PATCH [Suspect]
     Active Substance: RIVASTIGMINE
     Dosage: 4.5 MG
     Route: 062
     Dates: start: 201211
  3. MEMANTINE HYDROCHLORIDE [Concomitant]
     Active Substance: MEMANTINE HYDROCHLORIDE
  4. NICERGOLINE [Concomitant]
     Active Substance: NICERGOLINE
  5. EXELON PATCH [Suspect]
     Active Substance: RIVASTIGMINE
     Dosage: 18 MG, PER DAY
     Route: 062

REACTIONS (2)
  - Hallucination, visual [Recovered/Resolved]
  - Compression fracture [Unknown]
